FAERS Safety Report 5221263-9 (Version None)
Quarter: 2007Q1

REPORT INFORMATION
  Report Type: 
  Country: None (occurrence: None)
  Receive Date: 20070126
  Receipt Date: 20070116
  Transmission Date: 20070707
  Serious: Yes (Life-Threatening, Hospitalization)
  Sender: FDA-Public Use
  Company Number: SEWYE026409SEP04

PATIENT
  Sex: Female

DRUGS (9)
  1. ENBREL [Suspect]
     Indication: RHEUMATOID ARTHRITIS
     Dates: start: 20031212, end: 20040301
  2. FOLACIN [Concomitant]
  3. ALVEDON [Concomitant]
  4. OPTINATE [Concomitant]
  5. DOLOXENE [Concomitant]
  6. AMILORID NM PHARMA [Concomitant]
  7. CALCICHEW [Concomitant]
  8. METHOTREXATE [Concomitant]
  9. TIBINIDE [Concomitant]

REACTIONS (2)
  - HYPERCALCAEMIA [None]
  - RENAL TUBULAR NECROSIS [None]
